FAERS Safety Report 7183408-3 (Version None)
Quarter: 2010Q4

REPORT INFORMATION
  Report Type: 
  Country: None (occurrence: None)
  Receive Date: 20101210
  Receipt Date: 20101203
  Transmission Date: 20110411
  Serious: Yes (Other)
  Sender: FDA-Public Use
  Company Number: 2009AL005572

PATIENT
  Age: 67 Year
  Sex: Female

DRUGS (4)
  1. DILTIAZEM HCL [Suspect]
     Indication: CARDIAC DISORDER
     Dates: start: 20090508
  2. LIPITOR [Suspect]
     Dosage: 10 MG;QD
     Dates: start: 20050606
  3. LANSOPRAZOLE [Concomitant]
  4. ATENOLOL [Concomitant]

REACTIONS (4)
  - BLOOD CREATINE PHOSPHOKINASE INCREASED [None]
  - BLOOD GLUCOSE ABNORMAL [None]
  - CARDIAC ENZYMES INCREASED [None]
  - MYALGIA [None]
